FAERS Safety Report 10419519 (Version 1)
Quarter: 2014Q2

REPORT INFORMATION
  Report Type: Spontaneous
  Country: US (occurrence: None)
  Receive Date: 20140618
  Receipt Date: 20140618
  Transmission Date: 20141212
  Serious: Yes (Other)
  Sender: FDA-Public Use
  Company Number: 088156

PATIENT
  Sex: Female

DRUGS (1)
  1. LACOSAMIDE [Suspect]

REACTIONS (5)
  - Generalised tonic-clonic seizure [None]
  - Convulsion [None]
  - Abnormal behaviour [None]
  - Speech disorder [None]
  - Gait disturbance [None]
